FAERS Safety Report 12242426 (Version 6)
Quarter: 2017Q2

REPORT INFORMATION
  Report Type: Report from Study
  Country: CL (occurrence: CL)
  Receive Date: 20160406
  Receipt Date: 20170616
  Transmission Date: 20170830
  Serious: Yes (Hospitalization, Other)
  Sender: FDA-Public Use
  Company Number: PHHY2014CL159032

PATIENT
  Age: 19 Year
  Sex: Female

DRUGS (2)
  1. YAZ [Concomitant]
     Active Substance: DROSPIRENONE\ETHINYL ESTRADIOL
     Indication: PRODUCT USED FOR UNKNOWN INDICATION
     Dosage: 1 OT, UNK
     Route: 065
     Dates: start: 20150729
  2. GILENYA [Suspect]
     Active Substance: FINGOLIMOD HYDROCHLORIDE
     Indication: MULTIPLE SCLEROSIS
     Dosage: 0.5 MG, QD
     Route: 048
     Dates: start: 20140804

REACTIONS (15)
  - Anxiety [Recovered/Resolved]
  - Optic atrophy [Unknown]
  - Viral upper respiratory tract infection [Recovered/Resolved]
  - Lacrimation increased [Recovered/Resolved]
  - Cough [Recovered/Resolved]
  - Chest pain [Recovering/Resolving]
  - Nervousness [Recovering/Resolving]
  - Headache [Recovered/Resolved]
  - Blood bilirubin decreased [Unknown]
  - Myalgia [Recovered/Resolved]
  - Anxiety disorder [Unknown]
  - Oropharyngeal pain [Recovered/Resolved]
  - White blood cell count decreased [Unknown]
  - Rhinitis [Recovered/Resolved]
  - Panic attack [Unknown]

NARRATIVE: CASE EVENT DATE: 20141013
